FAERS Safety Report 7961723-0 (Version None)
Quarter: 2011Q4

REPORT INFORMATION
  Report Type: 
  Country: None (occurrence: None)
  Receive Date: 20111202
  Receipt Date: 20111202
  Transmission Date: 20120403
  Serious: Yes (Life-Threatening, Hospitalization, Other)
  Sender: FDA-Public Use
  Company Number: None

PATIENT
  Age: 56 Year
  Sex: Female
  Weight: 61.2356 kg

DRUGS (1)
  1. RECLAST [Suspect]
     Indication: BONE PAIN
     Dosage: 1 - IV TREATMENT 1
     Dates: start: 20111001

REACTIONS (9)
  - VISUAL ACUITY REDUCED [None]
  - WEIGHT DECREASED [None]
  - PAIN [None]
  - HEADACHE [None]
  - CHILLS [None]
  - ARTHRALGIA [None]
  - DECREASED APPETITE [None]
  - MALAISE [None]
  - FEELING ABNORMAL [None]
